FAERS Safety Report 8811788 (Version 1)
Quarter: 2012Q4

REPORT INFORMATION
  Report Type: 
  Country: US (occurrence: US)
  Receive Date: 20120927
  Receipt Date: 20120927
  Transmission Date: 20130627
  Serious: Yes (Hospitalization, Other)
  Sender: FDA-Public Use
  Company Number: US-ASTRAZENECA-2010SE42344

PATIENT
  Age: 65 Year
  Sex: Female
  Weight: 97.3 kg

DRUGS (13)
  1. NEXIUM [Suspect]
     Route: 048
  2. NEXIUM [Suspect]
     Route: 048
     Dates: start: 20070331
  3. NEXIUM IV [Suspect]
     Dosage: 2 DOSES DURING HOSPITALIZATION
     Route: 042
     Dates: start: 201006, end: 201006
  4. BACTRIM DS [Concomitant]
     Route: 048
     Dates: start: 20070331
  5. NORCO [Concomitant]
     Dosage: 1-2 TABLETS EVERY FOUR HOURS
     Route: 048
     Dates: start: 20070331
  6. EFFEXOR XR [Concomitant]
     Route: 048
     Dates: start: 20070331
  7. EFFEXOR XR [Concomitant]
     Route: 048
     Dates: start: 20100613
  8. MVI [Concomitant]
     Route: 048
     Dates: start: 20070331
  9. KLONOPIN [Concomitant]
     Route: 048
     Dates: start: 20070331
  10. CELEBREX [Concomitant]
     Route: 048
     Dates: start: 20070321
  11. PROBIOTIC [Concomitant]
     Route: 048
     Dates: start: 20100613
  12. CA+VIT D [Concomitant]
     Route: 048
  13. CLARITIN [Concomitant]
     Route: 048

REACTIONS (14)
  - Chest pain [Unknown]
  - Postoperative thrombosis [Unknown]
  - Neuralgia [Unknown]
  - Nephrolithiasis [Unknown]
  - Urinary tract infection [Unknown]
  - Fall [Unknown]
  - Femur fracture [Unknown]
  - Back pain [Unknown]
  - Calcium metabolism disorder [Unknown]
  - Feeling abnormal [Unknown]
  - Haemoglobin decreased [Unknown]
  - Haematocrit decreased [Unknown]
  - Herpes zoster [Unknown]
  - Vaginal haemorrhage [Unknown]
